FAERS Safety Report 6817086-7 (Version None)
Quarter: 2010Q3

REPORT INFORMATION
  Report Type: 
  Country: None (occurrence: None)
  Receive Date: 20100706
  Receipt Date: 20100622
  Transmission Date: 20110219
  Serious: Yes (Hospitalization)
  Sender: FDA-Public Use
  Company Number: FR-TEVA-238642ISR

PATIENT
  Age: 70 Year
  Sex: Female

DRUGS (6)
  1. CARBOPLATIN [Suspect]
     Indication: BREAST CANCER
     Route: 042
     Dates: start: 20100114, end: 20100220
  2. PACLITAXEL [Suspect]
     Indication: BREAST CANCER
     Route: 042
     Dates: start: 20100114, end: 20100220
  3. BEVACIZUMAB [Suspect]
     Indication: BREAST CANCER
     Route: 042
     Dates: start: 20100114, end: 20100220
  4. AMIODARONE HYDROCHLORIDE [Suspect]
     Indication: CARDIAC FAILURE
     Route: 042
     Dates: start: 20100222
  5. AUGMENTIN '125' [Suspect]
     Route: 048
     Dates: start: 20100222, end: 20100308
  6. CEFTRIAXONE [Suspect]
     Route: 042
     Dates: start: 20100222, end: 20100326

REACTIONS (2)
  - RASH [None]
  - SKIN ULCER [None]
